FAERS Safety Report 9785384 (Version 1)
Quarter: 2013Q4

REPORT INFORMATION
  Report Type: Spontaneous
  Country: DK (occurrence: DE)
  Receive Date: 20131227
  Receipt Date: 20131227
  Transmission Date: 20140711
  Serious: Yes (Hospitalization)
  Sender: FDA-Public Use
  Company Number: DE-FRI-1000052456

PATIENT
  Age: 0 Day
  Sex: Male
  Weight: 2.51 kg

DRUGS (3)
  1. CITALOPRAM [Suspect]
     Dosage: 40 MG
     Route: 064
     Dates: end: 20130716
  2. THYRONAJOD [Concomitant]
     Dosage: 50 MG
     Route: 064
  3. NIFEDIPIN [Concomitant]
     Dosage: 1.5 DOSAGE FORMS
     Route: 064

REACTIONS (6)
  - Temperature regulation disorder [Recovered/Resolved]
  - Anxiety [Recovering/Resolving]
  - Abdominal pain [Recovering/Resolving]
  - Restlessness [Recovering/Resolving]
  - Neonatal disorder [Recovering/Resolving]
  - Foetal exposure during pregnancy [Recovering/Resolving]
